FAERS Safety Report 21889138 (Version 1)
Quarter: 2023Q1

REPORT INFORMATION
  Report Type: Spontaneous
  Country: US (occurrence: None)
  Receive Date: 20230119
  Receipt Date: 20230119
  Transmission Date: 20230417
  Serious: Yes (Hospitalization)
  Sender: FDA-Public Use
  Company Number: None

PATIENT
  Age: 60 Year
  Sex: Female
  Weight: 98 kg

DRUGS (1)
  1. FEMARA [Suspect]
     Active Substance: LETROZOLE
     Dates: end: 20221111

REACTIONS (9)
  - Movement disorder [None]
  - Asthenia [None]
  - Dizziness [None]
  - Nausea [None]
  - Vomiting [None]
  - Hyperkalaemia [None]
  - Blood urea increased [None]
  - Blood creatinine increased [None]
  - Electrocardiogram QRS complex prolonged [None]

NARRATIVE: CASE EVENT DATE: 20221111
